FAERS Safety Report 10236278 (Version 1)
Quarter: 2014Q1

REPORT INFORMATION
  Report Type: Spontaneous
  Country: US (occurrence: None)
  Receive Date: 20140306
  Receipt Date: 20140306
  Transmission Date: 20141002
  Serious: Yes (Other)
  Sender: FDA-Public Use
  Company Number: 163-21880-13031319

PATIENT
  Age: 59 Year
  Sex: Female
  Weight: 57.61 kg

DRUGS (7)
  1. REVLIMID ( LENALIDOMIDE) ( CAPSULES) [Suspect]
     Indication: PLASMA CELL MYELOMA
     Route: 048
     Dates: start: 20130112
  2. 8 HOUR C (CAPSULES) [Concomitant]
  3. BABY ASPIRIN(ACETYLSALICYLIC ACID)(UKNOWN) [Concomitant]
  4. CALCIUM CITRATE(CALCIUM CITRATE)(UKNOWN) [Concomitant]
  5. DEXAMETHASONE(DEXAMETHASONE)(UNKNOWN) [Concomitant]
  6. GABAPENTIN(GABAPENTIN)(UKNOWN) [Concomitant]
  7. STOOL SOFTENER(DOCUSATE SODIUM)(UKNOWN) [Concomitant]

REACTIONS (1)
  - Laboratory test abnormal [None]
